FAERS Safety Report 4290441-8 (Version None)
Quarter: 2004Q1

REPORT INFORMATION
  Report Type: 
  Country: None (occurrence: None)
  Receive Date: 20040210
  Receipt Date: 20031117
  Transmission Date: 20041129
  Serious: Yes (Hospitalization, Other)
  Sender: FDA-Public Use
  Company Number: WAES 0311USA02022

PATIENT
  Age: 47 Year
  Sex: Female

DRUGS (4)
  1. DARVOCET-N 100 [Concomitant]
     Dates: start: 20030913, end: 20030919
  2. STADOL [Concomitant]
     Dates: start: 20030910, end: 20030919
  3. INVANZ [Suspect]
     Indication: LOCALISED INFECTION
     Route: 042
     Dates: start: 20030910, end: 20030916
  4. PHENERGAN [Concomitant]
     Route: 042
     Dates: start: 20030910, end: 20030919

REACTIONS (3)
  - CONFUSIONAL STATE [None]
  - ENCEPHALOPATHY [None]
  - HALLUCINATION, VISUAL [None]
